FAERS Safety Report 6889154-5 (Version None)
Quarter: 2010Q3

REPORT INFORMATION
  Report Type: 
  Country: None (occurrence: None)
  Receive Date: 20100730
  Receipt Date: 20071227
  Transmission Date: 20110219
  Serious: No
  Sender: FDA-Public Use
  Company Number: US-PFIZER INC-2007063010

PATIENT
  Sex: Male

DRUGS (2)
  1. LIPITOR [Suspect]
  2. ANTINEOPLASTIC AGENTS [Suspect]

REACTIONS (1)
  - NEUROPATHY PERIPHERAL [None]
